FAERS Safety Report 5840550-4 (Version None)
Quarter: 2008Q3

REPORT INFORMATION
  Report Type: 
  Country: None (occurrence: None)
  Receive Date: 20080807
  Receipt Date: 20080807
  Transmission Date: 20090109
  Serious: No
  Sender: FDA-Public Use
  Company Number: None

PATIENT
  Sex: Male
  Weight: 23.587 kg

DRUGS (3)
  1. SINGULAIR [Suspect]
     Indication: ASTHMA
     Dosage: 1 TABLET 1/DAY PO
     Route: 048
     Dates: start: 20040501, end: 20080729
  2. ADVAIR DISKUS 100/50 [Concomitant]
  3. ZYRTEC [Concomitant]

REACTIONS (7)
  - ABNORMAL BEHAVIOUR [None]
  - AGGRESSION [None]
  - DISTURBANCE IN ATTENTION [None]
  - EMOTIONAL DISORDER [None]
  - EYE DISORDER [None]
  - INJURY [None]
  - MYDRIASIS [None]
